FAERS Safety Report 5679054-0 (Version None)
Quarter: 2008Q1

REPORT INFORMATION
  Report Type: 
  Country: None (occurrence: None)
  Receive Date: 20080321
  Receipt Date: 20080306
  Transmission Date: 20080703
  Serious: Yes (Hospitalization)
  Sender: FDA-Public Use
  Company Number: 192484

PATIENT
  Sex: Female

DRUGS (1)
  1. AVONEX [Suspect]
     Indication: MULTIPLE SCLEROSIS
     Dosage: QW;IM
     Route: 030
     Dates: start: 20010622

REACTIONS (7)
  - APPENDICITIS [None]
  - APPENDIX DISORDER [None]
  - BLADDER DISORDER [None]
  - BREAST CANCER [None]
  - CYST [None]
  - DIZZINESS [None]
  - OVARIAN CYST [None]
